FAERS Safety Report 12678421 (Version 1)
Quarter: 2016Q3

REPORT INFORMATION
  Report Type: Spontaneous
  Country: IE (occurrence: IE)
  Receive Date: 20160823
  Receipt Date: 20160823
  Transmission Date: 20161109
  Serious: Yes (Death)
  Sender: FDA-Public Use
  Company Number: IE-INCYTE CORPORATION-2016IN005085

PATIENT
  Age: 80 Year
  Sex: Female
  Weight: 58 kg

DRUGS (9)
  1. CENTYL K [Concomitant]
     Indication: PRODUCT USED FOR UNKNOWN INDICATION
     Dosage: 1 DF, QD
     Route: 065
     Dates: start: 19970324
  2. UCERAX [Concomitant]
     Indication: PRODUCT USED FOR UNKNOWN INDICATION
     Dosage: 25 MG, QD
     Route: 065
     Dates: start: 20100224
  3. ADENURIC [Concomitant]
     Active Substance: FEBUXOSTAT
     Indication: PRODUCT USED FOR UNKNOWN INDICATION
     Dosage: 80 MG, QD
     Route: 065
     Dates: start: 20140219
  4. PRAVASTATIN. [Concomitant]
     Active Substance: PRAVASTATIN
     Indication: PRODUCT USED FOR UNKNOWN INDICATION
     Dosage: 40 MG, QD
     Route: 065
     Dates: start: 20091120
  5. JAKAFI [Suspect]
     Active Substance: RUXOLITINIB
     Indication: MYELOPROLIFERATIVE NEOPLASM
     Dosage: 10 MG, BID
     Route: 065
     Dates: start: 20160310
  6. ADALAT CC [Concomitant]
     Active Substance: NIFEDIPINE
     Indication: PRODUCT USED FOR UNKNOWN INDICATION
     Dosage: 30 MG, QD
     Route: 065
     Dates: start: 200105
  7. MOTILIUM [Concomitant]
     Active Substance: DOMPERIDONE
     Indication: PRODUCT USED FOR UNKNOWN INDICATION
     Dosage: 10 MG, TID
     Route: 065
     Dates: start: 20080226
  8. ACETYLSALICYLIC ACID [Concomitant]
     Active Substance: ASPIRIN
     Indication: PRODUCT USED FOR UNKNOWN INDICATION
     Dosage: 75 MG, QD
     Route: 065
     Dates: start: 20001219
  9. EMCOR [Concomitant]
     Active Substance: BISOPROLOL
     Indication: PRODUCT USED FOR UNKNOWN INDICATION
     Dosage: 5 MG, QD
     Route: 065
     Dates: start: 20001219

REACTIONS (2)
  - Haemorrhagic necrotic pancreatitis [Fatal]
  - Pneumonia aspiration [Fatal]

NARRATIVE: CASE EVENT DATE: 20160319
